FAERS Safety Report 4921200-8 (Version None)
Quarter: 2006Q1

REPORT INFORMATION
  Report Type: 
  Country: None (occurrence: None)
  Receive Date: 20060125
  Receipt Date: 20050602
  Transmission Date: 20060701
  Serious: Yes (Death, Hospitalization)
  Sender: FDA-Public Use
  Company Number: HQWYE285606JUN05

PATIENT
  Age: 87 Year
  Sex: Female

DRUGS (1)
  1. CORDARONE [Suspect]
     Indication: ATRIAL FIBRILLATION

REACTIONS (3)
  - DRUG TOXICITY [None]
  - HYPERTHYROIDISM [None]
  - LUNG INJURY [None]
